FAERS Safety Report 7730049-2 (Version None)
Quarter: 2011Q3

REPORT INFORMATION
  Report Type: 
  Country: None (occurrence: None)
  Receive Date: 20110906
  Receipt Date: 20110825
  Transmission Date: 20111222
  Serious: Yes (Other)
  Sender: FDA-Public Use
  Company Number: PHFR2011GB04476

PATIENT
  Sex: Female

DRUGS (1)
  1. CLOZAPINE [Suspect]
     Route: 048
     Dates: start: 20110622, end: 20110706

REACTIONS (2)
  - CONVULSION [None]
  - CONVERSION DISORDER [None]
